FAERS Safety Report 9063512 (Version 1)
Quarter: 2013Q1

REPORT INFORMATION
  Report Type: Spontaneous
  Country: US (occurrence: US)
  Receive Date: 20130213
  Receipt Date: 20130213
  Transmission Date: 20140127
  Serious: Yes (Hospitalization, Other)
  Sender: FDA-Public Use
  Company Number: PHHY2013US013722

PATIENT
  Age: 66 Year
  Sex: Male

DRUGS (4)
  1. NILOTINIB [Suspect]
     Indication: CHRONIC MYELOID LEUKAEMIA
     Dosage: 400 MG, BID
     Route: 048
  2. NILOTINIB [Suspect]
     Dosage: 300 MG, BID
     Route: 048
  3. NILOTINIB [Suspect]
     Dosage: 200 MG, BID
     Route: 048
  4. NILOTINIB [Suspect]
     Dosage: 150 MG, BID
     Route: 048

REACTIONS (6)
  - Pleural effusion [Recovered/Resolved]
  - Chest pain [Recovered/Resolved]
  - Dyspnoea [Recovered/Resolved]
  - Fatigue [Recovered/Resolved]
  - Muscle spasms [Unknown]
  - Oedema peripheral [Recovering/Resolving]
